FAERS Safety Report 12946592 (Version 1)
Quarter: 2016Q4

REPORT INFORMATION
  Report Type: Report from Study
  Country: PT (occurrence: PT)
  Receive Date: 20161116
  Receipt Date: 20161116
  Transmission Date: 20170207
  Serious: Yes (Hospitalization, Other)
  Sender: FDA-Public Use
  Company Number: PT-ROCHE-1851553

PATIENT

DRUGS (1)
  1. TOCILIZUMAB [Suspect]
     Active Substance: TOCILIZUMAB
     Indication: RHEUMATOID ARTHRITIS
     Route: 065

REACTIONS (7)
  - Dermatitis allergic [Unknown]
  - Vaginal infection [Recovered/Resolved]
  - Hepatocellular injury [Unknown]
  - Pneumonia [Recovered/Resolved]
  - Tracheobronchitis [Recovered/Resolved]
  - Leukopenia [Unknown]
  - Infection [Unknown]
